FAERS Safety Report 16857421 (Version 2)
Quarter: 2020Q3

REPORT INFORMATION
  Report Type: Spontaneous
  Country: CA (occurrence: CA)
  Receive Date: 20190926
  Receipt Date: 20200720
  Transmission Date: 20201102
  Serious: Yes (Life-Threatening, Hospitalization)
  Sender: FDA-Public Use
  Company Number: CA-009507513-1909CAN010703

PATIENT
  Age: 44 Year
  Sex: Female
  Weight: 69 kg

DRUGS (16)
  1. EMEND [Suspect]
     Active Substance: APREPITANT
     Indication: ANTIEMETIC SUPPORTIVE CARE
     Dosage: 80 MILLIGRAM, QD
     Route: 048
  2. FLUOROURACIL. [Suspect]
     Active Substance: FLUOROURACIL
     Indication: TRIPLE NEGATIVE BREAST CANCER
     Dosage: DOSAGE FORM: NOT SPECIFIED; 875 MILLIGRAM, CYCLICAL
     Route: 042
  3. EPIRUBICIN HYDROCHLORIDE. [Suspect]
     Active Substance: EPIRUBICIN HYDROCHLORIDE
     Indication: TRIPLE NEGATIVE BREAST CANCER
     Dosage: 177 MILLIGRAM, CYCLICAL; FORMULATION REPORTED AS SOLUTION INTRAVENOUS
     Route: 042
  4. FLUOROURACIL. [Suspect]
     Active Substance: FLUOROURACIL
     Dosage: DOSAGE FORM: NOT SPECIFIED; 875 MILLIGRAM, CYCLICAL
     Route: 065
  5. PEGFILGRASTIM [Suspect]
     Active Substance: PEGFILGRASTIM
     Indication: PRODUCT USED FOR UNKNOWN INDICATION
     Dosage: 6 MILLIGRAM
     Route: 058
  6. BETAMETHASONE VALERATE. [Concomitant]
     Active Substance: BETAMETHASONE VALERATE
     Dosage: UNK, QD
     Route: 065
  7. DEXAMETHASONE. [Suspect]
     Active Substance: DEXAMETHASONE
     Indication: PREMEDICATION
     Dosage: DOSAGE FORM: NOT SPECIFIED; 4 MILLIGRAM, BID
     Route: 048
  8. ONDANSETRON [Suspect]
     Active Substance: ONDANSETRON
     Indication: ANTIEMETIC SUPPORTIVE CARE
  9. METOCLOPRAMIDE. [Suspect]
     Active Substance: METOCLOPRAMIDE
     Indication: ANTIEMETIC SUPPORTIVE CARE
     Dosage: DOSAGE FORM: NOT SPECIFIED; 10 MILLIGRAM, AS REQUIRED
     Route: 048
  10. ONDANSETRON [Suspect]
     Active Substance: ONDANSETRON
     Indication: PREMEDICATION
     Dosage: DOSAGE FORM: NOT SPECIFIED; 8 MILLIGRAM
     Route: 048
  11. PROCYTOX [Suspect]
     Active Substance: CYCLOPHOSPHAMIDE
     Indication: TRIPLE NEGATIVE BREAST CANCER
     Dosage: 890 MILLIGRAM, Q3W; FORMULATION REPORTED AS POWDER FOR SOLUTION PARENTERAL
     Route: 042
  12. SODIUM CHLORIDE. [Suspect]
     Active Substance: SODIUM CHLORIDE
     Indication: MEDICATION DILUTION
     Dosage: 100 MILLILITER, Q3W
     Route: 042
  13. EMEND [Suspect]
     Active Substance: APREPITANT
     Indication: PREMEDICATION
     Dosage: 125 MILLIGRAM
     Route: 048
  14. EPIRUBICIN HYDROCHLORIDE. [Suspect]
     Active Substance: EPIRUBICIN HYDROCHLORIDE
     Dosage: DOSAGE FORM: NOT REPORTED; 177 MILLIGRAM, CYCLICAL;
     Route: 065
  15. DEXAMETHASONE. [Suspect]
     Active Substance: DEXAMETHASONE
     Indication: ANTIEMETIC SUPPORTIVE CARE
     Dosage: DOSAGE FORM: NOT SPECIFIED; 12 MILLIGRAM
     Route: 048
  16. COD LIVER OIL [Concomitant]
     Active Substance: COD LIVER OIL
     Dosage: UNK, QD
     Route: 048

REACTIONS (3)
  - Flushing [Recovered/Resolved]
  - Hyponatraemia [Recovered/Resolved]
  - Polydipsia [Recovered/Resolved]
